FAERS Safety Report 8665196 (Version 3)
Quarter: 2012Q4

REPORT INFORMATION
  Report Type: 
  Country: US (occurrence: US)
  Receive Date: 20120716
  Receipt Date: 20121227
  Transmission Date: 20130627
  Serious: No
  Sender: FDA-Public Use
  Company Number: US-PFIZER INC-2012165536

PATIENT
  Age: 71 Year
  Sex: Male
  Weight: 86.17 kg

DRUGS (4)
  1. VIAGRA [Suspect]
     Indication: ERECTILE DYSFUNCTION
     Dosage: 50 mg, single
     Route: 048
     Dates: start: 20120707, end: 20120707
  2. VIAGRA [Suspect]
     Dosage: 100 mg, as needed
     Route: 048
     Dates: start: 2012, end: 2012
  3. VIAGRA [Suspect]
     Dosage: 150 mg, as needed
     Route: 048
     Dates: start: 2012
  4. NEXIUM [Concomitant]
     Indication: HEARTBURN
     Dosage: 40 mg, as needed
     Route: 048

REACTIONS (3)
  - Drug ineffective [Unknown]
  - Drug effect incomplete [Unknown]
  - Off label use [Unknown]
